FAERS Safety Report 7301370-7 (Version None)
Quarter: 2011Q1

REPORT INFORMATION
  Report Type: 
  Country: None (occurrence: None)
  Receive Date: 20110218
  Receipt Date: 20110203
  Transmission Date: 20110831
  Serious: Yes (Hospitalization)
  Sender: FDA-Public Use
  Company Number: PHHY2011DE08634

PATIENT
  Sex: Male

DRUGS (4)
  1. ZOLEDRONIC ACID (ZOMETA) [Suspect]
     Dosage: 4 MG, QMO
     Dates: start: 20060101
  2. ZOLEDRONIC ACID (ZOMETA) [Suspect]
     Dosage: UNK
  3. ZOLEDRONIC ACID (ZOMETA) [Suspect]
     Dosage: UNK
  4. SUNITINIB [Concomitant]
     Dosage: UNK
     Dates: start: 20070201

REACTIONS (6)
  - BONE DISORDER [None]
  - IMPAIRED HEALING [None]
  - OSTEONECROSIS OF JAW [None]
  - ABSCESS JAW [None]
  - BONE LESION [None]
  - DENTAL CARIES [None]
